FAERS Safety Report 6532202-2 (Version None)
Quarter: 2010Q1

REPORT INFORMATION
  Report Type: 
  Country: None (occurrence: None)
  Receive Date: 20100108
  Receipt Date: 20091229
  Transmission Date: 20100710
  Serious: Yes (Hospitalization, Other)
  Sender: FDA-Public Use
  Company Number: FR-ABBOTT-09P-056-0613996-00

PATIENT
  Sex: Male

DRUGS (2)
  1. HUMIRA [Suspect]
     Indication: CROHN'S DISEASE
     Dosage: 160 MG AS LOADING DOSE THEN 40MG EVERY TWO WEEKS
     Route: 058
     Dates: start: 20090319, end: 20091001
  2. ANAFRANIL [Concomitant]
     Indication: CROHN'S DISEASE
     Dates: start: 20090301

REACTIONS (1)
  - OPTIC NEURITIS [None]
